FAERS Safety Report 5101487-1 (Version None)
Quarter: 2006Q3

REPORT INFORMATION
  Report Type: 
  Country: None (occurrence: None)
  Receive Date: 20060906
  Receipt Date: 20060825
  Transmission Date: 20061208
  Serious: Yes (Hospitalization)
  Sender: FDA-Public Use
  Company Number: 2006103851

PATIENT
  Age: 74 Year
  Sex: Female

DRUGS (4)
  1. XANAX [Suspect]
     Indication: ANXIETY
     Dosage: 20 DROP,3 IN 1 D, ORAL
     Route: 048
     Dates: start: 20060101
  2. EFFEXOR [Suspect]
     Indication: DEPRESSION
     Dosage: 1 UNIT (1 IN 1 D), ORAL
     Route: 048
     Dates: start: 20060101, end: 20060720
  3. GABAPENTIN [Concomitant]
  4. BRIVUDINE [Concomitant]

REACTIONS (2)
  - AGRANULOCYTOSIS [None]
  - HERPES ZOSTER [None]
